FAERS Safety Report 7845561-5 (Version None)
Quarter: 2011Q4

REPORT INFORMATION
  Report Type: 
  Country: None (occurrence: None)
  Receive Date: 20111018
  Receipt Date: 20111011
  Transmission Date: 20120403
  Serious: Yes (Other)
  Sender: FDA-Public Use
  Company Number: WAES 1110USA01325

PATIENT
  Age: 61 Year
  Sex: Female
  Weight: 59.8748 kg

DRUGS (5)
  1. LYRICA [Suspect]
     Indication: BACK PAIN
     Dosage: 50 MG/DAILY/PO
     Route: 048
     Dates: end: 20110909
  2. LYRICA [Suspect]
     Indication: BACK PAIN
     Dosage: 50 MG/DAILY/PO
     Route: 048
     Dates: start: 20110830
  3. VITAMINS (UNSPECIFIED) [Concomitant]
  4. FOSAMAX [Suspect]
     Indication: PRODUCT USED FOR UNKNOWN INDICATION
     Dosage: WKY/PO
     Route: 048
  5. CLONAZEPAM [Suspect]
     Indication: TINNITUS
     Dosage: 0.5 MG/DAILY
     Dates: start: 20080901

REACTIONS (6)
  - DRUG INEFFECTIVE [None]
  - CONFUSIONAL STATE [None]
  - DRUG INTERACTION [None]
  - HALLUCINATION, AUDITORY [None]
  - TINNITUS [None]
  - CONDITION AGGRAVATED [None]
